FAERS Safety Report 9370540 (Version 2)
Quarter: 2013Q3

REPORT INFORMATION
  Report Type: Spontaneous
  Country: CN (occurrence: CN)
  Receive Date: 20130626
  Receipt Date: 20130708
  Transmission Date: 20140515
  Serious: Yes (Death, Hospitalization)
  Sender: FDA-Public Use
  Company Number: CN-GLAXOSMITHKLINE-B0902691A

PATIENT
  Age: 62 Year
  Sex: Male

DRUGS (2)
  1. LAMICTAL [Suspect]
     Indication: EPILEPSY
     Dosage: 25MG PER DAY
     Route: 048
  2. SODIUM VALPROATE [Concomitant]
     Indication: EPILEPSY
     Dosage: 500MG PER DAY
     Route: 048

REACTIONS (35)
  - Dermatitis exfoliative [Fatal]
  - Rash [Unknown]
  - Condition aggravated [Unknown]
  - Pyrexia [Unknown]
  - Altered state of consciousness [Unknown]
  - Muscle twitching [Unknown]
  - Erythema [Unknown]
  - Blister [Unknown]
  - Skin ulcer [Unknown]
  - Scab [Unknown]
  - Skin exfoliation [Unknown]
  - Drug hypersensitivity [Unknown]
  - Mouth ulceration [Unknown]
  - Somnolence [Unknown]
  - Generalised erythema [Unknown]
  - Skin swelling [Unknown]
  - Pain of skin [Unknown]
  - Conjunctivitis [Unknown]
  - Cheilitis [Unknown]
  - Vulvovaginal erythema [Unknown]
  - Dyskinesia [Unknown]
  - Muscular weakness [Unknown]
  - Anaemia [Unknown]
  - Hypoproteinaemia [Unknown]
  - Electrolyte imbalance [Unknown]
  - Hypocalcaemia [Unknown]
  - Hyponatraemia [Unknown]
  - Hypochloraemia [Unknown]
  - Hypokalaemia [Unknown]
  - Septic shock [Unknown]
  - Purulent discharge [Unknown]
  - Hepatic function abnormal [Unknown]
  - Renal impairment [Unknown]
  - Leukopenia [Unknown]
  - Thrombocytopenia [Unknown]
